FAERS Safety Report 23731897 (Version 1)
Quarter: 2024Q2

REPORT INFORMATION
  Report Type: Other
  Country: CA (occurrence: CA)
  Receive Date: 20240411
  Receipt Date: 20240411
  Transmission Date: 20240716
  Serious: Yes (Other)
  Sender: FDA-Public Use
  Company Number: CA-PFIZER INC-202400081883

PATIENT
  Age: 52 Year
  Sex: Male

DRUGS (23)
  1. OXALIPLATIN [Suspect]
     Active Substance: OXALIPLATIN
     Indication: Pancreatic carcinoma metastatic
     Dosage: UNK
  2. DOCETAXEL [Suspect]
     Active Substance: DOCETAXEL\DOCETAXEL ANHYDROUS
     Dosage: UNK
     Route: 065
  3. GEMCITABINE HYDROCHLORIDE [Suspect]
     Active Substance: GEMCITABINE HYDROCHLORIDE
     Indication: Pancreatic carcinoma metastatic
     Dosage: UNK
  4. LORBRENA [Suspect]
     Active Substance: LORLATINIB
     Indication: Pancreatic carcinoma metastatic
     Dosage: UNK
  5. TRASTUZUMAB [Suspect]
     Active Substance: TRASTUZUMAB
     Indication: Pancreatic carcinoma metastatic
     Dosage: UNK
  6. CAPECITABINE [Suspect]
     Active Substance: CAPECITABINE
     Indication: Pancreatic carcinoma metastatic
  7. KEYTRUDA [Suspect]
     Active Substance: PEMBROLIZUMAB
     Indication: Pancreatic carcinoma metastatic
  8. PEMETREXED [Suspect]
     Active Substance: PEMETREXED
     Indication: Pancreatic carcinoma metastatic
  9. ALUNBRIG [Concomitant]
     Active Substance: BRIGATINIB
  10. CISPLATIN [Concomitant]
     Active Substance: CISPLATIN
     Route: 042
  11. ENHERTU [Concomitant]
     Active Substance: FAM-TRASTUZUMAB DERUXTECAN-NXKI
  12. FLUOROURACIL [Concomitant]
     Active Substance: FLUOROURACIL
  13. LEUCOVORIN [Concomitant]
     Active Substance: LEUCOVORIN\LEUCOVORIN CALCIUM
  14. IRINOTECAN HYDROCHLORIDE [Concomitant]
     Active Substance: IRINOTECAN HYDROCHLORIDE
  15. MITOMYCIN [Concomitant]
     Active Substance: MITOMYCIN
  16. PACLITAXEL [Concomitant]
     Active Substance: PACLITAXEL
  17. BEVACIZUMAB [Concomitant]
     Active Substance: BEVACIZUMAB
     Route: 042
  18. DEMCIZUMAB [Concomitant]
     Active Substance: DEMCIZUMAB
  19. AMILOMER [Concomitant]
     Active Substance: AMILOMER
  20. ENTRECTINIB [Concomitant]
     Active Substance: ENTRECTINIB
  21. LIPIODOL [Concomitant]
     Active Substance: ETHIODIZED OIL
  22. OSIMERTINIB [Concomitant]
     Active Substance: OSIMERTINIB
  23. PERTUZUMAB [Concomitant]
     Active Substance: PERTUZUMAB

REACTIONS (2)
  - Pancytopenia [Unknown]
  - Off label use [Unknown]
